FAERS Safety Report 8608202-5 (Version None)
Quarter: 2012Q3

REPORT INFORMATION
  Report Type: 
  Country: None (occurrence: None)
  Receive Date: 20120821
  Receipt Date: 20120816
  Transmission Date: 20120928
  Serious: Yes (Hospitalization, Other)
  Sender: FDA-Public Use
  Company Number: BR-PFIZER INC-2012167566

PATIENT
  Age: 66 Year
  Sex: Female

DRUGS (5)
  1. OLMESARTAN MEDOXOMIL AND HYDROCHLOROTHIZIDE [Suspect]
     Indication: HYPERTENSION
     Dosage: 20/12.5 MG ONCE DAILY
     Route: 048
     Dates: start: 20110330
  2. NORVASC [Suspect]
     Indication: HYPERTENSION
     Dosage: 5 MG, 1X/DAY
     Route: 048
     Dates: start: 20110330
  3. ATENOLOL [Concomitant]
     Indication: HYPERTENSION
     Dosage: 25 MG, 2X/DAY
  4. CLONAZEPAM [Concomitant]
     Indication: ANXIETY
     Dosage: 2 MG, 1X/DAY (AT NIGHT)
  5. OROXADIN [Concomitant]
     Indication: BLOOD CHOLESTEROL
     Dosage: 1 DF, 1X/DAY

REACTIONS (3)
  - ABDOMINAL PAIN UPPER [None]
  - RENAL CANCER [None]
  - HYPERTENSION [None]
